FAERS Safety Report 18121884 (Version 1)
Quarter: 2020Q3

REPORT INFORMATION
  Report Type: Spontaneous
  Country: AU (occurrence: AU)
  Receive Date: 20200806
  Receipt Date: 20200806
  Transmission Date: 20201103
  Serious: Yes (Other)
  Sender: FDA-Public Use
  Company Number: AU-BAXTER-2020BAX012398

PATIENT
  Age: 43 Year
  Sex: Female

DRUGS (1)
  1. BAXTER 0.9% SODIUM CHLORIDE 9G_L INJECTION BP BAG AHB1324 [Suspect]
     Active Substance: SODIUM CHLORIDE
     Indication: DEVICE PRIMING
     Dosage: 1 L BAG
     Route: 065
     Dates: start: 20200407, end: 20200407

REACTIONS (3)
  - Taste disorder [Recovered/Resolved]
  - Rash macular [Recovered/Resolved]
  - Hot flush [Recovered/Resolved]

NARRATIVE: CASE EVENT DATE: 20200407
